FAERS Safety Report 9140957 (Version 1)
Quarter: 2013Q1

REPORT INFORMATION
  Report Type: Report from Study
  Country: DE (occurrence: DE)
  Receive Date: 20130305
  Receipt Date: 20130305
  Transmission Date: 20140127
  Serious: Yes (Hospitalization)
  Sender: FDA-Public Use
  Company Number: DE-ABBOTT-13P-062-1055860-00

PATIENT
  Age: 42 Year
  Sex: Female
  Weight: 49 kg

DRUGS (6)
  1. HUMIRA [Suspect]
     Indication: CROHN^S DISEASE
     Route: 050
     Dates: start: 20120223, end: 201211
  2. HUMIRA [Suspect]
     Route: 058
     Dates: start: 201212, end: 201302
  3. FERINJECT [Concomitant]
     Indication: PRODUCT USED FOR UNKNOWN INDICATION
     Dosage: UNK.
     Route: 042
  4. VITAMIN B12 [Concomitant]
     Indication: PRODUCT USED FOR UNKNOWN INDICATION
     Dosage: UNK.
  5. FOLIC ACID [Concomitant]
     Indication: PRODUCT USED FOR UNKNOWN INDICATION
     Dosage: UNK.
     Route: 050
  6. VITAMIN E [Concomitant]
     Indication: PRODUCT USED FOR UNKNOWN INDICATION
     Dosage: UNK.

REACTIONS (2)
  - Ileal stenosis [Recovered/Resolved]
  - Drug ineffective [Unknown]
